FAERS Safety Report 25898230 (Version 4)
Quarter: 2025Q4

REPORT INFORMATION
  Report Type: Report from Study
  Country: US (occurrence: US)
  Receive Date: 20251008
  Receipt Date: 20251214
  Transmission Date: 20260117
  Serious: Yes (Other)
  Sender: ABBVIE
  Company Number: US-ABBVIE-6489076

PATIENT
  Age: 85 Year
  Sex: Male

DRUGS (3)
  1. CREON [Suspect]
     Active Substance: PANCRELIPASE AMYLASE\PANCRELIPASE LIPASE\PANCRELIPASE PROTEASE
     Indication: Product used for unknown indication
     Dosage: LAST ADMIN DATE: 2025?ONE PER MEAL
     Route: 048
     Dates: start: 202509
  2. CREON [Suspect]
     Active Substance: PANCRELIPASE AMYLASE\PANCRELIPASE LIPASE\PANCRELIPASE PROTEASE
     Indication: Product used for unknown indication
     Dosage: 48,000 STRENGTHS WITH TWO PER MEAL, LAST ADMIN-2025
     Route: 048
     Dates: start: 20251002
  3. CREON [Suspect]
     Active Substance: PANCRELIPASE AMYLASE\PANCRELIPASE LIPASE\PANCRELIPASE PROTEASE
     Indication: Product used for unknown indication
     Dosage: STRENGTH TO EITHER 36,000 OR 38,000 UNITS, FIRST ADMIN-2025
     Route: 048

REACTIONS (9)
  - Prostate cancer metastatic [Unknown]
  - Colitis [Unknown]
  - Constipation [Not Recovered/Not Resolved]
  - Pancreatic failure [Unknown]
  - Diarrhoea [Not Recovered/Not Resolved]
  - Therapeutic product effect incomplete [Recovering/Resolving]
  - Dysphagia [Unknown]
  - Pain [Unknown]
  - Adverse food reaction [Unknown]

NARRATIVE: CASE EVENT DATE: 20250101
